FAERS Safety Report 8609840-6 (Version None)
Quarter: 2012Q3

REPORT INFORMATION
  Report Type: 
  Country: None (occurrence: None)
  Receive Date: 20120821
  Receipt Date: 20120813
  Transmission Date: 20120928
  Serious: Yes (Hospitalization)
  Sender: FDA-Public Use
  Company Number: PHHY2012US070489

PATIENT
  Age: 71 Year
  Sex: Female

DRUGS (2)
  1. BUFFERIN [Suspect]
     Indication: PAIN
     Dosage: 1 DF, QD
     Route: 048
     Dates: end: 20111201
  2. ASPIRIN [Suspect]

REACTIONS (3)
  - ABDOMINAL PAIN UPPER [None]
  - FOOD POISONING [None]
  - INCORRECT DRUG ADMINISTRATION DURATION [None]
